FAERS Safety Report 9957659 (Version 1)
Quarter: 2014Q1

REPORT INFORMATION
  Report Type: Report from Study
  Country: US (occurrence: US)
  Receive Date: 20140304
  Receipt Date: 20140304
  Transmission Date: 20141002
  Serious: No
  Sender: FDA-Public Use
  Company Number: US-ABBVIE-13P-163-1093529-00

PATIENT
  Age: 46 Year
  Sex: Male

DRUGS (7)
  1. HUMIRA [Suspect]
     Indication: CROHN^S DISEASE
     Dates: start: 201302
  2. LORTAB [Concomitant]
     Indication: PAIN
  3. METFORMIN [Concomitant]
     Indication: DIABETES MELLITUS
  4. VALIUM [Concomitant]
     Indication: ANXIETY
  5. HYDROCHLOROTHIAZIDE [Concomitant]
     Indication: BLOOD PRESSURE
  6. ZYRTEC [Concomitant]
     Indication: HYPERSENSITIVITY
  7. FLONASE [Concomitant]
     Indication: HYPERSENSITIVITY
     Dosage: DAILY

REACTIONS (2)
  - Injection site extravasation [Recovering/Resolving]
  - Injection site swelling [Recovering/Resolving]
